FAERS Safety Report 17241046 (Version 4)
Quarter: 2020Q1

REPORT INFORMATION
  Report Type: Report from Study
  Country: None (occurrence: US)
  Receive Date: 20200107
  Receipt Date: 20200327
  Transmission Date: 20200409
  Serious: Yes (Other)
  Sender: FDA-Public Use
  Company Number: US-ABBVIE-20P-163-3219200-00

PATIENT
  Sex: Female

DRUGS (2)
  1. IMBRUVICA [Suspect]
     Active Substance: IBRUTINIB
     Indication: EXTRANODAL MARGINAL ZONE B-CELL LYMPHOMA (MALT TYPE)
     Route: 048
     Dates: start: 20191218
  2. IMBRUVICA [Suspect]
     Active Substance: IBRUTINIB
     Route: 048
     Dates: start: 20191218

REACTIONS (7)
  - Cough [Unknown]
  - Mucous stools [Unknown]
  - Malignant melanoma [Unknown]
  - Nasopharyngitis [Unknown]
  - Biopsy [Unknown]
  - Skin lesion removal [Not Recovered/Not Resolved]
  - Melanocytic naevus [Unknown]
